FAERS Safety Report 5917089-0 (Version None)
Quarter: 2008Q4

REPORT INFORMATION
  Report Type: 
  Country: None (occurrence: None)
  Receive Date: 20081009
  Receipt Date: 20080924
  Transmission Date: 20090506
  Serious: Yes (Hospitalization, Other)
  Sender: FDA-Public Use
  Company Number: 2008S1017430

PATIENT
  Age: 37 Year
  Sex: Male

DRUGS (4)
  1. ETOPOSIDE [Suspect]
     Indication: SEMINOMA
  2. BLEOMYCIN SULFATE [Suspect]
     Indication: SEMINOMA
  3. CISPLATIN [Suspect]
     Indication: SEMINOMA
  4. WARFARIN SODIUM [Concomitant]

REACTIONS (9)
  - ARTERIAL THROMBOSIS [None]
  - DELIRIUM [None]
  - HYPOAESTHESIA [None]
  - LEG AMPUTATION [None]
  - NEUROTOXICITY [None]
  - NEUTROPENIC SEPSIS [None]
  - PAIN IN EXTREMITY [None]
  - PERIPHERAL ISCHAEMIA [None]
  - RASH [None]
